FAERS Safety Report 6991355-2 (Version None)
Quarter: 2010Q3

REPORT INFORMATION
  Report Type: 
  Country: None (occurrence: None)
  Receive Date: 20100916
  Receipt Date: 20090604
  Transmission Date: 20110219
  Serious: Yes (Other)
  Sender: FDA-Public Use
  Company Number: US-WYE-H09625409

PATIENT
  Sex: Female
  Weight: 67.19 kg

DRUGS (3)
  1. TORISEL [Suspect]
     Indication: RENAL CELL CARCINOMA
     Route: 042
     Dates: start: 20090604
  2. VITAMINS [Concomitant]
     Dosage: DOSE NOT PROVIDED, FREQUENCY ONCE A DAY
     Route: 048
  3. ESTRADIOL [Concomitant]
     Dosage: FREQUENCY ONCE A DAY, DOSE NOT PROVIDED
     Route: 048

REACTIONS (3)
  - BACK PAIN [None]
  - CHEST PAIN [None]
  - PAIN IN EXTREMITY [None]
